FAERS Safety Report 8322196-1 (Version None)
Quarter: 2012Q2

REPORT INFORMATION
  Report Type: 
  Country: None (occurrence: None)
  Receive Date: 20120430
  Receipt Date: 20110428
  Transmission Date: 20120825
  Serious: No
  Sender: FDA-Public Use
  Company Number: US-COVIDIEN/TYCO HEALTHCARE/MALLINCKRODT-T201100880

PATIENT

DRUGS (2)
  1. HYDROCODONE BITARTRATE + ACETAMINOPHEN [Suspect]
     Indication: BACK PAIN
  2. HYDROCODONE BITARTRATE + ACETAMINOPHEN [Suspect]
     Indication: NECK PAIN
     Dosage: 10/325 MG X 3-4 PER DAY
     Route: 048
     Dates: start: 20110408

REACTIONS (2)
  - PARAESTHESIA [None]
  - HEADACHE [None]
